FAERS Safety Report 24689633 (Version 2)
Quarter: 2025Q1

REPORT INFORMATION
  Report Type: Spontaneous
  Country: JP (occurrence: JP)
  Receive Date: 20241203
  Receipt Date: 20250307
  Transmission Date: 20250408
  Serious: Yes (Hospitalization, Other)
  Sender: GLAXOSMITHKLINE
  Company Number: JP-GLAXOSMITHKLINE INC-JP2024JPN147623

PATIENT

DRUGS (18)
  1. FLOLAN [Suspect]
     Active Substance: EPOPROSTENOL SODIUM
     Indication: Pulmonary hypertension
  2. FLOLAN [Suspect]
     Active Substance: EPOPROSTENOL SODIUM
  3. FLOLAN [Suspect]
     Active Substance: EPOPROSTENOL SODIUM
  4. FLOLAN [Suspect]
     Active Substance: EPOPROSTENOL SODIUM
  5. FLOLAN [Suspect]
     Active Substance: EPOPROSTENOL SODIUM
  6. FLOLAN [Suspect]
     Active Substance: EPOPROSTENOL SODIUM
  7. REVATIO [Concomitant]
     Active Substance: SILDENAFIL CITRATE
     Indication: Pulmonary hypertension
     Dosage: 60 MG, QD
  8. TRACLEER [Concomitant]
     Active Substance: BOSENTAN
     Indication: Pulmonary hypertension
     Dosage: 250 MG, QD
  9. OFEV [Concomitant]
     Active Substance: NINTEDANIB
     Indication: Interstitial lung disease
     Dosage: 300 MG, QD
  10. FUROSEMIDE [Concomitant]
     Active Substance: FUROSEMIDE
     Dosage: 60 MG, QD
  11. FUROSEMIDE [Concomitant]
     Active Substance: FUROSEMIDE
     Dosage: 80 MG, QD
  12. FUROSEMIDE [Concomitant]
     Active Substance: FUROSEMIDE
     Dosage: 60 MG, QD
  13. TOLVAPTAN [Concomitant]
     Active Substance: TOLVAPTAN
     Dosage: 3.75 MG, QD
  14. TOLVAPTAN [Concomitant]
     Active Substance: TOLVAPTAN
     Dosage: 7.5 MG, QD
  15. TOLVAPTAN [Concomitant]
     Active Substance: TOLVAPTAN
     Dosage: 15 MG, QD
  16. SPIRONOLACTONE [Concomitant]
     Active Substance: SPIRONOLACTONE
     Dosage: 75 MG, QD
  17. OXYGEN [Concomitant]
     Active Substance: OXYGEN
  18. OXYGEN [Concomitant]
     Active Substance: OXYGEN

REACTIONS (8)
  - Hypoxia [Unknown]
  - Pulmonary hypertension [Recovering/Resolving]
  - Weight increased [Unknown]
  - Oedema peripheral [Unknown]
  - Ventilation perfusion mismatch [Unknown]
  - Dyspnoea exertional [Unknown]
  - Cardiac failure congestive [Unknown]
  - Jugular vein distension [Unknown]
